FAERS Safety Report 7584900-X (Version None)
Quarter: 2011Q2

REPORT INFORMATION
  Report Type: 
  Country: None (occurrence: None)
  Receive Date: 20110630
  Receipt Date: 20110627
  Transmission Date: 20111010
  Serious: Yes (Other)
  Sender: FDA-Public Use
  Company Number: US-CEPHALON-2011001472

PATIENT
  Sex: Male
  Weight: 108 kg

DRUGS (2)
  1. TREANDA [Suspect]
     Indication: CHRONIC LYMPHOCYTIC LEUKAEMIA
     Route: 042
     Dates: start: 20110309, end: 20110406
  2. RITUXIMAB [Concomitant]

REACTIONS (1)
  - RASH MACULO-PAPULAR [None]
